FAERS Safety Report 7637230-1 (Version None)
Quarter: 2011Q3

REPORT INFORMATION
  Report Type: 
  Country: None (occurrence: None)
  Receive Date: 20110726
  Receipt Date: 20090625
  Transmission Date: 20111222
  Serious: Yes (Death, Other)
  Sender: FDA-Public Use
  Company Number: US-BAYER-200924272NA

PATIENT
  Age: 63 Year
  Sex: Female
  Weight: 172.6 kg

DRUGS (26)
  1. PLAVIX [Concomitant]
     Dosage: UNK
     Route: 048
     Dates: end: 20070509
  2. LASIX [Concomitant]
     Dosage: 20 MG, QD
     Route: 048
     Dates: start: 20040101
  3. LOPRESSOR [Concomitant]
     Dosage: 1MG/1CC
     Route: 042
     Dates: start: 20070509
  4. ZOCOR [Concomitant]
     Dosage: 40 MG, QD
     Route: 048
     Dates: start: 20030101
  5. NIPRIDE [Concomitant]
     Dosage: UNK
     Route: 042
     Dates: start: 20070511
  6. DOBUTREX [Concomitant]
     Dosage: UNK
     Route: 042
     Dates: start: 20070511
  7. PROTAMINE SULFATE [Concomitant]
     Dosage: UNK
     Route: 042
     Dates: start: 20070511
  8. TRASYLOL [Suspect]
     Indication: PRODUCT USED FOR UNKNOWN INDICATION
     Dosage: LOADING DOSE - 200ML PUMP PRIME
     Route: 042
     Dates: start: 20070511
  9. AVANDIA [Concomitant]
     Dosage: 4 MG, QD
     Route: 048
     Dates: start: 20020101
  10. HEPARIN [Concomitant]
     Dosage: UNK
     Route: 042
     Dates: start: 20070510
  11. HEPARIN [Concomitant]
     Dosage: 69,000 UNITS
     Route: 042
     Dates: start: 20070511
  12. LOVENOX [Concomitant]
     Dosage: 40MG
     Route: 058
     Dates: start: 20070508
  13. METOPROLOL TARTRATE [Concomitant]
     Dosage: 5MG
     Route: 042
     Dates: start: 20070508
  14. GLUCOPHAGE [Concomitant]
     Dosage: 1000 MG, BID
     Route: 048
  15. COREG [Concomitant]
     Dosage: 6.25 MG, QD
     Route: 048
     Dates: start: 20070509
  16. NITROGLYCERIN [Concomitant]
     Dosage: TITRATED DOSE
     Route: 042
     Dates: start: 20070508
  17. AMIODARONE HCL [Concomitant]
     Dosage: UNK
     Route: 042
     Dates: start: 20070511
  18. NITROGLYCERIN [Concomitant]
     Dosage: UNK
     Route: 042
     Dates: start: 20070511
  19. GENTAMYCIN SULFATE [Concomitant]
     Dosage: 100MG
     Route: 042
     Dates: start: 20070511
  20. ACETYLSALICYLIC ACID SRT [Concomitant]
     Dosage: 81 MG, QD
     Route: 048
     Dates: start: 20070509
  21. LASIX [Concomitant]
     Dosage: 80MG
     Route: 042
     Dates: start: 20070508
  22. LASIX [Concomitant]
     Dosage: 40MG
     Route: 042
     Dates: start: 20070511
  23. DIOVAN [Concomitant]
     Dosage: 80MG
     Route: 048
     Dates: start: 20060301
  24. VOLTAREN [Concomitant]
     Dosage: 50MG
     Route: 048
  25. SIMVASTATIN [Concomitant]
     Dosage: 40 MG, QD
     Route: 048
  26. FENTANYL [Concomitant]
     Dosage: UNK
     Route: 042
     Dates: start: 20070511

REACTIONS (13)
  - DEATH [None]
  - MULTI-ORGAN FAILURE [None]
  - EMOTIONAL DISTRESS [None]
  - RENAL INJURY [None]
  - UNEVALUABLE EVENT [None]
  - ANXIETY [None]
  - FEAR [None]
  - PAIN [None]
  - INJURY [None]
  - RENAL FAILURE [None]
  - STRESS [None]
  - RENAL IMPAIRMENT [None]
  - ANHEDONIA [None]
